FAERS Safety Report 14506458 (Version 3)
Quarter: 2018Q1

REPORT INFORMATION
  Report Type: Report from Study
  Country: US (occurrence: US)
  Receive Date: 20180208
  Receipt Date: 20180308
  Transmission Date: 20180509
  Serious: Yes (Other)
  Sender: FDA-Public Use
  Company Number: US-BAYER-2018-020458

PATIENT
  Age: 60 Year
  Sex: Female

DRUGS (1)
  1. STIVARGA [Suspect]
     Active Substance: REGORAFENIB
     Indication: COLORECTAL CANCER METASTATIC
     Dosage: DAILY DOSE 160 MG (3 WEEKS ON, 1 WEEK OFF)
     Route: 048
     Dates: start: 20171211, end: 20180222

REACTIONS (28)
  - Diarrhoea [None]
  - Decreased appetite [None]
  - Nausea [None]
  - Drug dose omission [None]
  - Adverse drug reaction [None]
  - Hepatic cirrhosis [None]
  - Fatigue [None]
  - Haemoptysis [Recovered/Resolved]
  - Gastroenteritis viral [None]
  - Malaise [None]
  - Cough [None]
  - Decreased appetite [None]
  - Gingival bleeding [None]
  - Asthenia [None]
  - Productive cough [None]
  - Exercise tolerance decreased [None]
  - Diarrhoea [None]
  - Abnormal loss of weight [None]
  - Skin disorder [None]
  - Dry mouth [None]
  - Vomiting [None]
  - Gingival bleeding [None]
  - Ocular icterus [None]
  - Somnolence [None]
  - Fatigue [None]
  - Abdominal pain [None]
  - Weight decreased [None]
  - Drug ineffective [None]

NARRATIVE: CASE EVENT DATE: 201712
